FAERS Safety Report 19122599 (Version 1)
Quarter: 2021Q2

REPORT INFORMATION
  Report Type: Spontaneous
  Country: US (occurrence: US)
  Receive Date: 20210412
  Receipt Date: 20210412
  Transmission Date: 20210717
  Serious: Yes (Life-Threatening, Other)
  Sender: FDA-Public Use
  Company Number: US-PFIZER INC-2021355869

PATIENT
  Age: 7 Year
  Sex: Female

DRUGS (3)
  1. VALPROATE [Concomitant]
     Active Substance: VALPROIC ACID
     Indication: MENINGITIS VIRAL
     Dosage: UNK
  2. METHYLPREDNISOLONE ACETATE. [Suspect]
     Active Substance: METHYLPREDNISOLONE ACETATE
     Indication: MENINGITIS VIRAL
     Dosage: UNK
     Route: 042
  3. KETOROLAC [Concomitant]
     Active Substance: KETOROLAC TROMETHAMINE
     Indication: MENINGITIS VIRAL
     Dosage: UNK

REACTIONS (5)
  - Hallucination, visual [Recovering/Resolving]
  - Seizure [Recovering/Resolving]
  - Psychiatric symptom [Recovering/Resolving]
  - Eye disorder [Recovering/Resolving]
  - Photophobia [Recovering/Resolving]
